FAERS Safety Report 13709684 (Version 1)
Quarter: 2017Q3

REPORT INFORMATION
  Report Type: Spontaneous
  Country: PL (occurrence: PL)
  Receive Date: 20170703
  Receipt Date: 20170703
  Transmission Date: 20171127
  Serious: Yes (Hospitalization)
  Sender: FDA-Public Use
  Company Number: PL-BAXTER-2017BAX025351

PATIENT
  Age: 40 Year
  Sex: Male
  Weight: 57 kg

DRUGS (2)
  1. ENDOXAN [Suspect]
     Active Substance: CYCLOPHOSPHAMIDE
     Indication: BREAST CANCER
     Dosage: DOSE: 984 (UNIT NOT SPECIFIED)
     Route: 042
     Dates: start: 20150904
  2. DOXORUBICIN ACCORD [Suspect]
     Active Substance: DOXORUBICIN HYDROCHLORIDE
     Indication: BREAST CANCER
     Dosage: DOSE: 98 (UNIT NOT SPECIFIED)
     Route: 042
     Dates: start: 20150904

REACTIONS (4)
  - Metastasis [Unknown]
  - Jaundice cholestatic [Unknown]
  - Bile duct obstruction [Unknown]
  - Hepatic failure [Unknown]

NARRATIVE: CASE EVENT DATE: 201509
